FAERS Safety Report 21684232 (Version 1)
Quarter: 2022Q4

REPORT INFORMATION
  Report Type: Spontaneous
  Country: US (occurrence: None)
  Receive Date: 20221202
  Receipt Date: 20221202
  Transmission Date: 20230112
  Serious: No
  Sender: FDA-Public Use
  Company Number: None

PATIENT
  Age: 68 Year
  Sex: Female

DRUGS (1)
  1. OTEZLA [Suspect]
     Active Substance: APREMILAST
     Indication: Psoriatic arthropathy
     Dosage: 30MG TWICE DAILY ORALLY
     Route: 048
     Dates: start: 202208, end: 20221130

REACTIONS (4)
  - Diarrhoea [None]
  - Drug ineffective [None]
  - Weight decreased [None]
  - Therapy cessation [None]

NARRATIVE: CASE EVENT DATE: 20220801
